FAERS Safety Report 5508884-0 (Version None)
Quarter: 2007Q4

REPORT INFORMATION
  Report Type: 
  Country: None (occurrence: None)
  Receive Date: 20071031
  Receipt Date: 20070719
  Transmission Date: 20080405
  Serious: Yes (Hospitalization, Other)
  Sender: FDA-Public Use
  Company Number: 200712178BWH

PATIENT
  Age: 68 Year
  Sex: Male

DRUGS (3)
  1. NEXAVAR [Suspect]
     Indication: METASTASES TO LUNG
     Dosage: 200 MG, BID, ORAL
     Route: 048
     Dates: start: 20070601
  2. NEXAVAR [Suspect]
     Indication: METASTASES TO LYMPH NODES
     Dosage: 200 MG, BID, ORAL
     Route: 048
     Dates: start: 20070601
  3. NEXAVAR [Suspect]
     Indication: METASTATIC RENAL CELL CARCINOMA
     Dosage: 200 MG, BID, ORAL
     Route: 048
     Dates: start: 20070601

REACTIONS (7)
  - ABDOMINAL PAIN [None]
  - BLOOD AMYLASE INCREASED [None]
  - BLOOD PRESSURE INCREASED [None]
  - FATIGUE [None]
  - HEADACHE [None]
  - LIPASE INCREASED [None]
  - PANCREATITIS [None]
